FAERS Safety Report 4497901-5 (Version None)
Quarter: 2004Q4

REPORT INFORMATION
  Report Type: 
  Country: None (occurrence: None)
  Receive Date: 20041105
  Receipt Date: 20041026
  Transmission Date: 20050328
  Serious: Yes (Hospitalization)
  Sender: FDA-Public Use
  Company Number: 199259

PATIENT
  Age: 51 Year
  Sex: Female

DRUGS (18)
  1. AVONEX [Suspect]
     Indication: MULTIPLE SCLEROSIS
     Dosage: 30 MCG QW IM
     Route: 030
     Dates: start: 20030101, end: 20040101
  2. AVONEX [Suspect]
     Indication: MULTIPLE SCLEROSIS
     Dosage: 30 MCG QW IM
     Route: 030
     Dates: start: 20040101
  3. ZYPREXA [Concomitant]
  4. LORAZEPAM [Concomitant]
  5. SINEMET CR [Concomitant]
  6. BACLOFEN [Concomitant]
  7. TOPAMAX [Concomitant]
  8. CYPROHEPTADIENE [Concomitant]
  9. DITROPAN [Concomitant]
  10. HYDROXYZINE [Concomitant]
  11. PROTONIX [Concomitant]
  12. MAXALT [Concomitant]
  13. TRAMADOL [Concomitant]
  14. EFFEXOR [Concomitant]
  15. SENOKOT [Concomitant]
  16. TUMS [Concomitant]
  17. MULTI-VITAMINS [Concomitant]
  18. APAP TAB [Concomitant]

REACTIONS (2)
  - FEAR [None]
  - INSOMNIA [None]
